FAERS Safety Report 8587025-X (Version None)
Quarter: 2012Q3

REPORT INFORMATION
  Report Type: 
  Country: None (occurrence: None)
  Receive Date: 20120810
  Receipt Date: 20120712
  Transmission Date: 20120928
  Serious: No
  Sender: FDA-Public Use
  Company Number: US-ASTRAZENECA-2012SE48885

PATIENT
  Age: 55 Year
  Sex: Female

DRUGS (3)
  1. CRESTOR [Suspect]
     Route: 048
  2. NEXIUM [Suspect]
     Route: 048
  3. SYMBICORT [Suspect]
     Dosage: UNKNOWN FREQUENCY.
     Route: 055

REACTIONS (3)
  - CARDIAC DISORDER [None]
  - DRUG INEFFECTIVE [None]
  - DYSPNOEA [None]
